FAERS Safety Report 4342582-4 (Version None)
Quarter: 2004Q1

REPORT INFORMATION
  Report Type: 
  Country: None (occurrence: None)
  Receive Date: 20040213
  Receipt Date: 20031205
  Transmission Date: 20041129
  Serious: Yes (Hospitalization)
  Sender: FDA-Public Use
  Company Number: 353629

PATIENT
  Age: 45 Year
  Sex: Female
  Weight: 90.7 kg

DRUGS (3)
  1. PEGASYS [Suspect]
     Indication: HEPATITIS C
     Dosage: 180 MCG 1 PER WEEK SUBCUTANEOUS
     Route: 058
     Dates: start: 20030829, end: 20031122
  2. COPEGUS [Suspect]
     Indication: HEPATITIS C
     Dosage: 800 MG DAILY ORAL
     Route: 048
     Dates: start: 20030829, end: 20031125
  3. LOTREL (AMLODIPINE BESYLATE/BENAZEPRIL HYDROCHLORIDE) [Concomitant]

REACTIONS (6)
  - APLASIA [None]
  - BONE MARROW DEPRESSION [None]
  - HAEMATOCRIT ABNORMAL [None]
  - PANCYTOPENIA [None]
  - PLATELET COUNT ABNORMAL [None]
  - WHITE BLOOD CELL COUNT ABNORMAL [None]
